FAERS Safety Report 14860139 (Version 1)
Quarter: 2018Q2

REPORT INFORMATION
  Report Type: Spontaneous
  Country: GB (occurrence: GB)
  Receive Date: 20180508
  Receipt Date: 20180508
  Transmission Date: 20180711
  Serious: Yes (Life-Threatening, Hospitalization)
  Sender: FDA-Public Use
  Company Number: GB-TEVA-318996ISR

PATIENT
  Age: 27 Year
  Sex: Male
  Weight: 79 kg

DRUGS (16)
  1. TOPIRAMATE. [Suspect]
     Active Substance: TOPIRAMATE
     Route: 065
     Dates: start: 20111212, end: 20111213
  2. TOPIRAMATE. [Suspect]
     Active Substance: TOPIRAMATE
     Route: 065
     Dates: start: 20120104, end: 20120105
  3. GABAPENTIN. [Concomitant]
     Active Substance: GABAPENTIN
     Dates: start: 20111003, end: 20111222
  4. VITAMIN B SUBSTANCES [Concomitant]
     Dates: start: 20111115, end: 20111213
  5. DICLOFENAC SODIUM. [Concomitant]
     Active Substance: DICLOFENAC SODIUM
     Dates: start: 20131125, end: 20131209
  6. LAMOTRIGINE. [Concomitant]
     Active Substance: LAMOTRIGINE
     Dates: start: 20130927
  7. TOPIRAMATE. [Suspect]
     Active Substance: TOPIRAMATE
     Route: 065
     Dates: start: 20131227
  8. OMEPRAZOLE. [Concomitant]
     Active Substance: OMEPRAZOLE
     Dates: start: 20111027, end: 20111222
  9. NAPROXEN. [Concomitant]
     Active Substance: NAPROXEN
     Dates: start: 20111115, end: 20111213
  10. FLUTICASONE PROPIONATE. [Concomitant]
     Active Substance: FLUTICASONE PROPIONATE
     Dates: start: 20130927, end: 20131004
  11. OMEPRAZOLE. [Concomitant]
     Active Substance: OMEPRAZOLE
     Dates: start: 20130920, end: 20131231
  12. OMEPRAZOLE. [Concomitant]
     Active Substance: OMEPRAZOLE
     Dates: start: 20120104
  13. ZOPICLONE [Concomitant]
     Active Substance: ZOPICLONE
     Dates: start: 20130920, end: 20131018
  14. NAPROXEN. [Concomitant]
     Active Substance: NAPROXEN
     Dates: start: 20131227
  15. TOPIRAMATE. [Suspect]
     Active Substance: TOPIRAMATE
     Route: 065
     Dates: start: 20120116
  16. PREGABALIN. [Concomitant]
     Active Substance: PREGABALIN
     Dates: start: 20130816

REACTIONS (5)
  - Bipolar disorder [Not Recovered/Not Resolved]
  - Suicide attempt [Unknown]
  - Aggression [Unknown]
  - Mood altered [Unknown]
  - Intentional overdose [Unknown]

NARRATIVE: CASE EVENT DATE: 20120116
